FAERS Safety Report 7145302-3 (Version None)
Quarter: 2010Q4

REPORT INFORMATION
  Report Type: 
  Country: None (occurrence: None)
  Receive Date: 20101208
  Receipt Date: 20101201
  Transmission Date: 20110411
  Serious: Yes (Other)
  Sender: FDA-Public Use
  Company Number: KR-PFIZER INC-2010162229

PATIENT

DRUGS (1)
  1. XANAX [Suspect]
     Route: 048

REACTIONS (2)
  - ANGIOEDEMA [None]
  - RASH [None]
